FAERS Safety Report 4545914-7 (Version None)
Quarter: 2005Q1

REPORT INFORMATION
  Report Type: 
  Country: None (occurrence: None)
  Receive Date: 20050103
  Receipt Date: 20041220
  Transmission Date: 20050727
  Serious: Yes (Hospitalization, Other)
  Sender: FDA-Public Use
  Company Number: 2004115430

PATIENT

DRUGS (1)
  1. CELEBREX [Suspect]
     Indication: OSTEOARTHRITIS

REACTIONS (4)
  - ASPIRATION [None]
  - CARDIAC FAILURE CONGESTIVE [None]
  - HYSTERECTOMY [None]
  - OVERWEIGHT [None]
